FAERS Safety Report 9535839 (Version 2)
Quarter: 2013Q3

REPORT INFORMATION
  Report Type: Spontaneous
  Country: CA (occurrence: None)
  Receive Date: 20130329
  Receipt Date: 20130815
  Transmission Date: 20140515
  Serious: Yes (Death)
  Sender: FDA-Public Use
  Company Number: ADR-2013-00416

PATIENT
  Sex: 0

DRUGS (1)
  1. BACLOFEN INTRATHECAL [Suspect]

REACTIONS (1)
  - Death [None]
